FAERS Safety Report 7380563-7 (Version None)
Quarter: 2011Q1

REPORT INFORMATION
  Report Type: 
  Country: None (occurrence: None)
  Receive Date: 20110321
  Receipt Date: 20110308
  Transmission Date: 20110831
  Serious: Yes (Death, Hospitalization)
  Sender: FDA-Public Use
  Company Number: US-1184806

PATIENT
  Age: 91 Year
  Sex: Female
  Weight: 44.9061 kg

DRUGS (2)
  1. BETOPTIC S [Suspect]
     Indication: GLAUCOMA
     Dosage: 1 GTT QD OU OPHTHALMIC
     Route: 047
     Dates: start: 20090901, end: 20110101
  2. SYNTHROID [Concomitant]

REACTIONS (2)
  - CARDIAC ARREST [None]
  - FALL [None]
